FAERS Safety Report 4548203-X (Version None)
Quarter: 2004Q4

REPORT INFORMATION
  Report Type: 
  Country: None (occurrence: None)
  Receive Date: 20041227
  Receipt Date: 20040930
  Transmission Date: 20050328
  Serious: No
  Sender: FDA-Public Use
  Company Number: 04P-163-0275347-00

PATIENT
  Age: 48 Year
  Sex: Female
  Weight: 118 kg

DRUGS (8)
  1. HUMIRA [Suspect]
     Indication: RHEUMATOID ARTHRITIS
     Dosage: 40 MG, 1 IN 2 WK, SUBCUTANEOUS
     Route: 058
     Dates: start: 20030221, end: 20040930
  2. MELOXICAM [Concomitant]
  3. NORETHINDRONE ACETATE AND ETHINYL ESTRADIOL [Concomitant]
  4. HYZAAR [Concomitant]
  5. MULTI-VITAMINS [Concomitant]
  6. MSM [Concomitant]
  7. CALCIUM WITH VITAMIN D [Concomitant]
  8. CATAPHES F [Concomitant]

REACTIONS (2)
  - NASOPHARYNGITIS [None]
  - PHARYNGOLARYNGEAL PAIN [None]
